FAERS Safety Report 21338811 (Version 7)
Quarter: 2023Q1

REPORT INFORMATION
  Report Type: Spontaneous
  Country: JP (occurrence: JP)
  Receive Date: 20220915
  Receipt Date: 20230116
  Transmission Date: 20230418
  Serious: Yes (Hospitalization, Other)
  Sender: FDA-Public Use
  Company Number: JP-SYMBIO-202200403

PATIENT
  Age: 62 Year
  Sex: Male
  Weight: 69 kg

DRUGS (28)
  1. BENDAMUSTINE HYDROCHLORIDE [Suspect]
     Active Substance: BENDAMUSTINE HYDROCHLORIDE
     Indication: Follicular lymphoma
     Dosage: (1ST CYCLE ON DAY 1 AND 2)
     Route: 041
     Dates: start: 20191009, end: 20191010
  2. BENDAMUSTINE HYDROCHLORIDE [Suspect]
     Active Substance: BENDAMUSTINE HYDROCHLORIDE
     Dosage: (2ND CYCLE)
     Route: 041
     Dates: start: 20191117, end: 20191118
  3. BENDAMUSTINE HYDROCHLORIDE [Suspect]
     Active Substance: BENDAMUSTINE HYDROCHLORIDE
     Dosage: (3RD CYCLE)
     Route: 041
     Dates: start: 20191205, end: 20191206
  4. BENDAMUSTINE HYDROCHLORIDE [Suspect]
     Active Substance: BENDAMUSTINE HYDROCHLORIDE
     Dosage: (4TH CYCLE)
     Route: 041
     Dates: start: 20200109, end: 20200110
  5. BENDAMUSTINE HYDROCHLORIDE [Suspect]
     Active Substance: BENDAMUSTINE HYDROCHLORIDE
     Dosage: (5TH CYCLE)
     Route: 041
     Dates: start: 20200213, end: 20200214
  6. BENDAMUSTINE HYDROCHLORIDE [Suspect]
     Active Substance: BENDAMUSTINE HYDROCHLORIDE
     Dosage: (6TH CYCLE)
     Route: 041
     Dates: start: 20200318, end: 20200319
  7. GAZYVA [Suspect]
     Active Substance: OBINUTUZUMAB
     Indication: Follicular lymphoma
     Route: 041
     Dates: start: 20191018, end: 20191018
  8. GAZYVA [Suspect]
     Active Substance: OBINUTUZUMAB
     Dosage: (2ND CYCLE)
     Route: 041
     Dates: start: 20191117, end: 20191117
  9. GAZYVA [Suspect]
     Active Substance: OBINUTUZUMAB
     Dosage: (3RD CYCLE)
     Route: 041
     Dates: start: 20191205, end: 20191205
  10. GAZYVA [Suspect]
     Active Substance: OBINUTUZUMAB
     Dosage: (4TH CYCLE)
     Route: 041
     Dates: start: 20200109, end: 20200109
  11. GAZYVA [Suspect]
     Active Substance: OBINUTUZUMAB
     Dosage: (5TH CYCLE)
     Route: 041
     Dates: start: 20200213, end: 20200213
  12. GAZYVA [Suspect]
     Active Substance: OBINUTUZUMAB
     Dosage: (6TH CYCLE)
     Route: 041
     Dates: start: 20200318, end: 20200318
  13. GAZYVA [Suspect]
     Active Substance: OBINUTUZUMAB
     Dosage: (MAINTENANCE THERAPY PERFORMED)
     Route: 041
     Dates: start: 20200402, end: 20200402
  14. GAZYVA [Suspect]
     Active Substance: OBINUTUZUMAB
     Dosage: MAINTENANCE THERAPY PERFORMED)
     Route: 041
     Dates: start: 20200610, end: 20210128
  15. SOLU-CORTEF [Concomitant]
     Active Substance: HYDROCORTISONE SODIUM SUCCINATE
     Indication: Product used for unknown indication
     Route: 042
     Dates: start: 20191009, end: 20191010
  16. SOLU-CORTEF [Concomitant]
     Active Substance: HYDROCORTISONE SODIUM SUCCINATE
     Route: 042
     Dates: start: 20191117, end: 20191118
  17. SOLU-CORTEF [Concomitant]
     Active Substance: HYDROCORTISONE SODIUM SUCCINATE
     Route: 042
     Dates: start: 20191205, end: 20191206
  18. SOLU-CORTEF [Concomitant]
     Active Substance: HYDROCORTISONE SODIUM SUCCINATE
     Route: 042
     Dates: start: 20200109, end: 20200110
  19. SOLU-CORTEF [Concomitant]
     Active Substance: HYDROCORTISONE SODIUM SUCCINATE
     Route: 042
     Dates: start: 20200213, end: 20200214
  20. SOLU-CORTEF [Concomitant]
     Active Substance: HYDROCORTISONE SODIUM SUCCINATE
     Route: 042
     Dates: start: 20200318, end: 20200319
  21. GRANISETRON [Concomitant]
     Active Substance: GRANISETRON
     Indication: Product used for unknown indication
     Route: 042
     Dates: start: 20191009, end: 20191010
  22. GRANISETRON [Concomitant]
     Active Substance: GRANISETRON
     Route: 042
     Dates: start: 20191117, end: 20191118
  23. GRANISETRON [Concomitant]
     Active Substance: GRANISETRON
     Route: 042
     Dates: start: 20191205, end: 20191206
  24. GRANISETRON [Concomitant]
     Active Substance: GRANISETRON
     Route: 042
     Dates: start: 20200109, end: 20200110
  25. GRANISETRON [Concomitant]
     Active Substance: GRANISETRON
     Route: 042
     Dates: start: 20200213, end: 20200214
  26. GRANISETRON [Concomitant]
     Active Substance: GRANISETRON
     Route: 042
     Dates: start: 20200318, end: 20200319
  27. SULFAMETHOXAZOLE\TRIMETHOPRIM [Concomitant]
     Active Substance: SULFAMETHOXAZOLE\TRIMETHOPRIM
     Indication: Prophylaxis
     Dosage: 0.5 DF, ONCE DAILY
     Route: 048
     Dates: start: 20191212, end: 20200501
  28. OMEPRAZOLE [Concomitant]
     Active Substance: OMEPRAZOLE
     Indication: Gastritis prophylaxis
     Route: 048
     Dates: start: 20191009, end: 20200501

REACTIONS (3)
  - Hypogammaglobulinaemia [Not Recovered/Not Resolved]
  - Lymphocyte count decreased [Recovering/Resolving]
  - COVID-19 pneumonia [Recovered/Resolved]

NARRATIVE: CASE EVENT DATE: 20191118
